FAERS Safety Report 5696502-0 (Version None)
Quarter: 2008Q2

REPORT INFORMATION
  Report Type: 
  Country: None (occurrence: None)
  Receive Date: 20080408
  Receipt Date: 20080328
  Transmission Date: 20081010
  Serious: Yes (Hospitalization)
  Sender: FDA-Public Use
  Company Number: KR-BRISTOL-MYERS SQUIBB COMPANY-14141378

PATIENT
  Age: 58 Year
  Sex: Female
  Weight: 56 kg

DRUGS (6)
  1. METFORMIN HCL [Suspect]
     Indication: DIABETES MELLITUS
     Route: 048
     Dates: start: 20080212
  2. LIRAGLUTIDE [Suspect]
     Indication: DIABETES MELLITUS
     Route: 048
     Dates: start: 20080311
  3. GLIMEPIRIDE [Suspect]
     Indication: DIABETES MELLITUS
     Dates: start: 20080311
  4. RAMIPRIL [Concomitant]
     Dates: start: 20030610
  5. ASPIRIN [Concomitant]
     Dates: start: 20030610
  6. LACIDIPINE [Concomitant]
     Dates: start: 20041005

REACTIONS (1)
  - GASTROENTERITIS [None]
